FAERS Safety Report 8803052 (Version 1)
Quarter: 2012Q4

REPORT INFORMATION
  Report Type: 
  Country: US (occurrence: US)
  Receive Date: 20120924
  Receipt Date: 20120924
  Transmission Date: 20130627
  Serious: No
  Sender: FDA-Public Use
  Company Number: US-B.I. PHARMACEUTICALS,INC./RIDGEFIELD-2012-BP-22832BP

PATIENT
  Sex: Male

DRUGS (2)
  1. PRADAXA [Suspect]
     Route: 048
  2. DILTIAZEM [Concomitant]
     Indication: CARDIAC DISORDER

REACTIONS (5)
  - Asthenia [Unknown]
  - Chills [Unknown]
  - Contusion [Unknown]
  - Chills [Not Recovered/Not Resolved]
  - Lethargy [Not Recovered/Not Resolved]
